FAERS Safety Report 11510146 (Version 1)
Quarter: 2015Q3

REPORT INFORMATION
  Report Type: Spontaneous
  Country: US (occurrence: US)
  Receive Date: 20150915
  Receipt Date: 20150915
  Transmission Date: 20151125
  Serious: No
  Sender: FDA-Public Use
  Company Number: US-JNJFOC-20150715321

PATIENT
  Sex: Female

DRUGS (1)
  1. TYLENOL EXTRA STRENGTH [Suspect]
     Active Substance: ACETAMINOPHEN
     Indication: PAIN
     Dosage: 1-2 CAPLETS; EVERY OTHER DAY
     Route: 048
     Dates: end: 20150719

REACTIONS (2)
  - Somnolence [Not Recovered/Not Resolved]
  - Incorrect dose administered [Not Recovered/Not Resolved]
